FAERS Safety Report 13233103 (Version 1)
Quarter: 2017Q1

REPORT INFORMATION
  Report Type: Report from Study
  Country: JP (occurrence: JP)
  Receive Date: 20170215
  Receipt Date: 20170215
  Transmission Date: 20170428
  Serious: Yes (Other)
  Sender: FDA-Public Use
  Company Number: JP-ORION CORPORATION ORION PHARMA-ENT 2008-0201

PATIENT
  Age: 76 Year
  Sex: Female
  Weight: 37 kg

DRUGS (13)
  1. COMTAN [Suspect]
     Active Substance: ENTACAPONE
     Indication: DRUG EFFECT DECREASED
     Route: 048
     Dates: start: 20081021, end: 20081111
  2. E C DOPAL [Concomitant]
     Route: 065
  3. DOPS [Concomitant]
     Active Substance: DROXIDOPA
     Route: 065
  4. MAGLAX [Concomitant]
     Active Substance: MAGNESIUM OXIDE
     Route: 065
  5. BERIZYM [Concomitant]
     Active Substance: CELLULASE\DIASTASE\LIPASE
     Route: 065
  6. LEVODOPA-CARBIDOPA [Concomitant]
     Active Substance: CARBIDOPA\LEVODOPA
     Route: 065
  7. GASCON [Concomitant]
     Active Substance: DIMETHICONE
     Route: 065
  8. RHYTHMY [Concomitant]
     Active Substance: RILMAZAFONE HYDROCHLORIDE
     Route: 065
  9. DOMIN (TALIPEXOLE) [Concomitant]
     Route: 065
     Dates: start: 20080331
  10. GASMOTIN (MOSAPRIDE CITRATE) [Concomitant]
     Active Substance: MOSAPRIDE CITRATE
     Route: 065
  11. PRAMIPEXOLE DIHYDROCHLORIDE. [Concomitant]
     Active Substance: PRAMIPEXOLE DIHYDROCHLORIDE
     Route: 065
  12. SELBEX [Concomitant]
     Active Substance: TEPRENONE
     Route: 065
  13. LAXOBERON [Concomitant]
     Active Substance: SODIUM PICOSULFATE
     Route: 065

REACTIONS (10)
  - Fall [Unknown]
  - Contusion [Unknown]
  - Alanine aminotransferase increased [Unknown]
  - Altered state of consciousness [Recovering/Resolving]
  - Hallucination [Recovering/Resolving]
  - Blood creatine phosphokinase increased [Unknown]
  - Aspartate aminotransferase increased [Unknown]
  - Drug ineffective [Unknown]
  - Humerus fracture [Unknown]
  - Blood urea increased [Unknown]

NARRATIVE: CASE EVENT DATE: 20081110
